FAERS Safety Report 11596449 (Version 2)
Quarter: 2016Q1

REPORT INFORMATION
  Report Type: Report from Study
  Country: US (occurrence: US)
  Receive Date: 20151006
  Receipt Date: 20160315
  Transmission Date: 20160525
  Serious: No
  Sender: FDA-Public Use
  Company Number: US-AMGEN-USASP2015102159

PATIENT
  Age: 59 Year
  Sex: Female

DRUGS (2)
  1. ENBREL [Suspect]
     Active Substance: ETANERCEPT
     Dosage: 25 MG, 2 TIMES/WK
     Route: 065
  2. ENBREL [Suspect]
     Active Substance: ETANERCEPT
     Indication: RHEUMATOID ARTHRITIS
     Dosage: 50 MG, QWK
     Route: 065
     Dates: start: 20150824

REACTIONS (15)
  - Joint swelling [Unknown]
  - Pruritus [Unknown]
  - Injection site erythema [Unknown]
  - Nasopharyngitis [Recovering/Resolving]
  - Arthropod bite [Unknown]
  - Injection site swelling [Unknown]
  - Sputum discoloured [Unknown]
  - Injection site warmth [Unknown]
  - Head discomfort [Recovering/Resolving]
  - Pain [Recovering/Resolving]
  - Injection site reaction [Unknown]
  - Productive cough [Recovering/Resolving]
  - Joint warmth [Unknown]
  - Injection site pruritus [Unknown]
  - Chills [Recovering/Resolving]

NARRATIVE: CASE EVENT DATE: 2015
